FAERS Safety Report 8528443-5 (Version None)
Quarter: 2012Q3

REPORT INFORMATION
  Report Type: 
  Country: None (occurrence: None)
  Receive Date: 20120723
  Receipt Date: 20120717
  Transmission Date: 20120928
  Serious: No
  Sender: FDA-Public Use
  Company Number: US-009507513-1207USA005965

PATIENT

DRUGS (3)
  1. COZAAR [Suspect]
     Indication: HYPERTENSION
     Dosage: 100 MG, QD
     Route: 048
     Dates: start: 20120501, end: 20120501
  2. METOPROLOL SUCCINATE [Concomitant]
  3. PLAVIX [Concomitant]

REACTIONS (3)
  - FEELING ABNORMAL [None]
  - DIZZINESS [None]
  - CARDIAC FLUTTER [None]
